FAERS Safety Report 9298700 (Version 4)
Quarter: 2013Q3

REPORT INFORMATION
  Report Type: Spontaneous
  Country: US (occurrence: US)
  Receive Date: 20130520
  Receipt Date: 20130818
  Transmission Date: 20140515
  Serious: Yes (Hospitalization, Other)
  Sender: FDA-Public Use
  Company Number: US-JNJFOC-20130505730

PATIENT
  Age: 68 Year
  Sex: Male
  Weight: 92.5 kg

DRUGS (25)
  1. XARELTO [Suspect]
     Indication: CEREBROVASCULAR ACCIDENT PROPHYLAXIS
     Route: 048
  2. XARELTO [Suspect]
     Indication: CEREBROVASCULAR ACCIDENT PROPHYLAXIS
     Route: 048
     Dates: start: 20130322, end: 20130427
  3. XARELTO [Suspect]
     Indication: CEREBROVASCULAR ACCIDENT PROPHYLAXIS
     Route: 048
     Dates: start: 20130207, end: 20130317
  4. XARELTO [Suspect]
     Indication: CEREBROVASCULAR ACCIDENT PROPHYLAXIS
     Route: 048
     Dates: start: 20130214, end: 20130315
  5. XARELTO [Suspect]
     Indication: ATRIAL FIBRILLATION
     Route: 048
     Dates: start: 20130207, end: 20130317
  6. XARELTO [Suspect]
     Indication: ATRIAL FIBRILLATION
     Route: 048
     Dates: start: 20130322, end: 20130427
  7. XARELTO [Suspect]
     Indication: ATRIAL FIBRILLATION
     Route: 048
     Dates: start: 20130214, end: 20130315
  8. XARELTO [Suspect]
     Indication: ATRIAL FIBRILLATION
     Route: 048
  9. ASPIRIN [Suspect]
     Indication: ANTIPLATELET THERAPY
     Route: 065
  10. TIKOSYN [Suspect]
     Indication: PRODUCT USED FOR UNKNOWN INDICATION
     Route: 065
  11. MULTAQ [Suspect]
     Indication: PRODUCT USED FOR UNKNOWN INDICATION
     Route: 065
  12. RANEXA [Suspect]
     Indication: ARRHYTHMIA
     Dates: start: 20130612
  13. AMIODARONE [Concomitant]
     Route: 048
     Dates: start: 20130227
  14. AMIODARONE [Concomitant]
     Route: 048
     Dates: start: 20130612
  15. COREG-CR [Concomitant]
     Indication: CARDIOMYOPATHY
     Route: 065
     Dates: start: 20130612
  16. COREG-CR [Concomitant]
     Indication: CARDIOMYOPATHY
     Dosage: AT BED TIME
     Route: 065
  17. VITAMIN B COMPLEX [Concomitant]
     Route: 048
  18. GLYBURIDE [Concomitant]
     Indication: TYPE 2 DIABETES MELLITUS
     Dosage: 1.25 MG TABLET; 1/2 TABLET ONCE A DAY
     Route: 065
     Dates: start: 20130606
  19. MULTIVITAMINS [Concomitant]
     Route: 048
  20. PRAVASTATIN [Concomitant]
     Route: 048
     Dates: start: 20121227, end: 20121227
  21. PRAVASTATIN [Concomitant]
     Route: 048
  22. AVODART [Concomitant]
     Indication: BENIGN PROSTATIC HYPERPLASIA
     Route: 065
  23. CENTRUM SILVER [Concomitant]
     Route: 065
  24. TYLENOL [Concomitant]
     Route: 065
  25. LEVETIRACETAM [Concomitant]
     Route: 048
     Dates: start: 20130528

REACTIONS (5)
  - Subdural haematoma [Recovered/Resolved]
  - Haematuria [Unknown]
  - Fall [Recovered/Resolved]
  - Electrocardiogram QT prolonged [Unknown]
  - Atrial flutter [Recovered/Resolved]
